FAERS Safety Report 23315731 (Version 2)
Quarter: 2023Q4

REPORT INFORMATION
  Report Type: Report from Study
  Country: TH (occurrence: TH)
  Receive Date: 20231219
  Receipt Date: 20231221
  Transmission Date: 20240110
  Serious: Yes (Hospitalization, Other)
  Sender: FDA-Public Use
  Company Number: TH-002147023-NVSC2023TH256043

PATIENT
  Age: 67 Year
  Sex: Female

DRUGS (44)
  1. KISQALI [Suspect]
     Active Substance: RIBOCICLIB
     Indication: Breast cancer metastatic
     Dosage: 200 MG
     Route: 048
  2. FEMARA [Suspect]
     Active Substance: LETROZOLE
     Indication: Product used for unknown indication
     Dosage: 2.5 MG
     Route: 065
  3. FENTANYL [Suspect]
     Active Substance: FENTANYL\FENTANYL CITRATE
     Indication: Product used for unknown indication
     Dosage: 12 UG (AMOUNT 4 PATCHES)
     Route: 065
  4. BACLOFEN [Suspect]
     Active Substance: BACLOFEN
     Indication: Product used for unknown indication
     Dosage: 10 MG
     Route: 065
  5. CONTROLOC [Concomitant]
     Active Substance: PANTOPRAZOLE SODIUM
     Indication: Product used for unknown indication
     Dosage: UNK
     Route: 065
  6. DULCOLAX [Concomitant]
     Indication: Product used for unknown indication
     Dosage: UNK (AMOUNT 5 TABLETS)
     Route: 065
  7. OREDA R.O. [Concomitant]
     Indication: Product used for unknown indication
     Dosage: UNK (SACHET 3.3 GM, AMOUNT 5 TABLETS)
     Route: 065
  8. LYRICA [Concomitant]
     Active Substance: PREGABALIN
     Indication: Product used for unknown indication
     Dosage: UNK (AMOUNT 12 CAPSULES)
     Route: 065
  9. DRAMAMINE [Concomitant]
     Active Substance: DIMENHYDRINATE
     Indication: Product used for unknown indication
     Dosage: UNK (AMOUNT 54 TABLETS)
     Route: 065
  10. DRAMAMINE [Concomitant]
     Active Substance: DIMENHYDRINATE
     Dosage: UNK (AMOUNT 20 TABLET)
     Route: 065
  11. EUTHYROX [Concomitant]
     Active Substance: LEVOTHYROXINE SODIUM
     Indication: Product used for unknown indication
     Dosage: UNK (AMOUNT 27 TABLETS)
     Route: 065
  12. CODESIA [Concomitant]
     Indication: Product used for unknown indication
     Dosage: UNK
     Route: 065
  13. IMODIUM [Concomitant]
     Active Substance: LOPERAMIDE HYDROCHLORIDE
     Indication: Product used for unknown indication
     Dosage: UNK (AMOUNT 2 CAPSULES)
     Route: 065
  14. RIVOTRIL [Concomitant]
     Active Substance: CLONAZEPAM
     Indication: Product used for unknown indication
     Dosage: 0.5 MG (AMOUNT 2 TABLET)
     Route: 065
  15. CODEINE [Concomitant]
     Active Substance: CODEINE
     Indication: Product used for unknown indication
     Dosage: UNK (AMOUNT 2 TABLETS)
     Route: 065
  16. CELEBREX [Concomitant]
     Active Substance: CELECOXIB
     Indication: Product used for unknown indication
     Dosage: UNK (AMOUNT 6 TABLETS)
     Route: 065
  17. ZOLPIDEM [Concomitant]
     Active Substance: ZOLPIDEM TARTRATE
     Indication: Product used for unknown indication
     Dosage: UNK (AMOUNT 1 TABLET)
     Route: 065
  18. METOCLOPRAMIDE [Concomitant]
     Active Substance: METOCLOPRAMIDE
     Indication: Product used for unknown indication
     Dosage: UNK (AMOUNT 9 TABLETS)
     Route: 065
  19. METOCLOPRAMIDE [Concomitant]
     Active Substance: METOCLOPRAMIDE
     Dosage: STRENGTH (10MG/2ML)
     Route: 065
  20. METOCLOPRAMIDE [Concomitant]
     Active Substance: METOCLOPRAMIDE
     Dosage: STRENGTH (10MG)
     Route: 065
  21. METOCLOPRAMIDE [Concomitant]
     Active Substance: METOCLOPRAMIDE
     Dosage: UNKUNK (INJ 2 ML, AMOUNT 13 INJECTION UNIT)
     Route: 065
  22. DEXTROMETHORPHAN [Concomitant]
     Active Substance: DEXTROMETHORPHAN
     Indication: Product used for unknown indication
     Dosage: UNK (AMOUNT 3 TABLETS)
     Route: 065
  23. DEXTROMETHORPHAN [Concomitant]
     Active Substance: DEXTROMETHORPHAN
     Dosage: UNK (AMOUNT 30 TABLETS)
     Route: 065
  24. AMLODIPINE [Concomitant]
     Active Substance: AMLODIPINE BESYLATE
     Indication: Product used for unknown indication
     Dosage: UNK (QUANTITY 3 TABLETS.)
     Route: 065
  25. BROWN MIXTURE [Concomitant]
     Indication: Product used for unknown indication
     Dosage: UNK (60 ML AMOUNT 1 BOTTLE)
     Route: 065
  26. CHARCOAL [Concomitant]
     Active Substance: ACTIVATED CHARCOAL
     Indication: Product used for unknown indication
     Dosage: UNK (AMOUNT 3 TABLETS)
     Route: 065
  27. FRESUBIN [Concomitant]
     Active Substance: AMINO ACIDS\DEXTROSE\ELECTROLYTES NOS\SOYBEAN OIL\VITAMINS
     Indication: Product used for unknown indication
     Dosage: UNK (LIQUID BOTTLE 200 ML AMOUNT 7 BOTTLES)
     Route: 065
  28. THROATSIL [Concomitant]
     Indication: Product used for unknown indication
     Dosage: UNK ( LOZENGES, TABLET (8 TABLETS/PACK) AMOUNT 1 TABLETS)
     Route: 065
  29. SERC [Concomitant]
     Indication: Product used for unknown indication
     Dosage: UNK (AMOUNT 9 TABLETS)
     Route: 065
  30. VITAMIN B COMPLEX [Concomitant]
     Active Substance: CYANOCOBALAMIN\DEXPANTHENOL\NIACINAMIDE\PYRIDOXINE HYDROCHLORIDE\RIBOFLAVIN 5^-PHOSPHATE SODIUM\THIA
     Indication: Product used for unknown indication
     Dosage: UNK (AMOUNT 1 INJECTION UNIT)
     Route: 065
  31. VITAMIN C [Concomitant]
     Active Substance: ASCORBIC ACID
     Indication: Product used for unknown indication
     Dosage: UNK (AMOUNT 20 INJECTION UNIT)
     Route: 065
  32. FLUIMUCIL [Concomitant]
     Active Substance: ACETYLCYSTEINE
     Indication: Product used for unknown indication
     Dosage: UNK (AMOUNT 6 INJECTION UNIT)
     Route: 065
  33. POTASSIUM CHLORIDE [Concomitant]
     Active Substance: POTASSIUM CHLORIDE
     Indication: Product used for unknown indication
     Dosage: UNK (20 MEQ) INJ 10 ML, AMOUNT 2 INJECTION UNIT)
     Route: 065
  34. ONDANSETRON [Concomitant]
     Active Substance: ONDANSETRON
     Indication: Product used for unknown indication
     Dosage: UNK (INJ 4 ML, AMOUNT 3 INJECTION UNIT)
     Route: 065
  35. POTASSIUM PHOSPHATE, DIBASIC [Concomitant]
     Active Substance: POTASSIUM PHOSPHATE, DIBASIC
     Indication: Product used for unknown indication
     Dosage: UNK (INJ 20 ML, QUANTITY 4 INJECTION UNIT )
     Route: 065
  36. DIAZEPAM [Concomitant]
     Active Substance: DIAZEPAM
     Indication: Product used for unknown indication
     Dosage: UNK (INJ 2 ML, AMOUNT 1 INJECTION UNIT)
     Route: 065
  37. DIMENHYDRINATE [Concomitant]
     Active Substance: DIMENHYDRINATE
     Indication: Product used for unknown indication
     Dosage: UNK (NJ 1 ML, AMOUNT 1 INJECTION UNIT)
     Route: 065
  38. GLYCOPHOS [Concomitant]
     Active Substance: SODIUM GLYCEROPHOSPHATE ANHYDROUS
     Indication: Product used for unknown indication
     Dosage: UNK ( INJ 20 ML, AMOUNT 4 INJECTION UNIT)
     Route: 065
  39. ZOMETA [Concomitant]
     Active Substance: ZOLEDRONIC ACID
     Indication: Product used for unknown indication
     Dosage: UNK (INJ 100 ML, AMOUNT 1 INJECTION UNIT.)
     Route: 065
  40. ROTUSS [Concomitant]
     Indication: Product used for unknown indication
     Dosage: UNK (AMOUNT 55 CAPSULES)
     Route: 065
  41. LANSOPRAZOLE [Concomitant]
     Active Substance: LANSOPRAZOLE
     Indication: Product used for unknown indication
     Dosage: UNK (AMOUNT 28 TABLETS)
     Route: 065
  42. AIR X [Concomitant]
     Indication: Product used for unknown indication
     Dosage: UNK (AMOUNT 20 TABLETS)
     Route: 065
  43. LORAZEPAM [Concomitant]
     Active Substance: LORAZEPAM
     Indication: Product used for unknown indication
     Dosage: UNK (AMOUNT 20 TABLETS)
     Route: 065
  44. MELATONIN [Concomitant]
     Active Substance: MELATONIN
     Indication: Product used for unknown indication
     Dosage: UNK
     Route: 065

REACTIONS (11)
  - Feeding disorder [Unknown]
  - Vertigo [Unknown]
  - Vomiting [Unknown]
  - Fatigue [Unknown]
  - Metastases to bone [Unknown]
  - Metastases to lung [Unknown]
  - Hypertension [Unknown]
  - Pain [Unknown]
  - Nausea [Unknown]
  - White blood cell count decreased [Unknown]
  - Liver disorder [Unknown]

NARRATIVE: CASE EVENT DATE: 20230209
